FAERS Safety Report 8829364 (Version 1)
Quarter: 2012Q4

REPORT INFORMATION
  Report Type: Spontaneous
  Country: US (occurrence: None)
  Receive Date: 20121005
  Receipt Date: 20121005
  Transmission Date: 20130627
  Serious: Yes (Death)
  Sender: FDA-Public Use
  Company Number: None

PATIENT
  Age: 89 Year
  Sex: Male
  Weight: 68.04 kg

DRUGS (1)
  1. RISPERIDONE [Suspect]
     Indication: DEMENTIA
     Dosage: 1 tablet twice a day mouth
     Route: 048
     Dates: start: 20110614, end: 20110702

REACTIONS (3)
  - Anxiety [None]
  - Disease progression [None]
  - Dementia [None]
